FAERS Safety Report 18705359 (Version 1)
Quarter: 2021Q1

REPORT INFORMATION
  Report Type: Spontaneous
  Country: US (occurrence: US)
  Receive Date: 20210106
  Receipt Date: 20210106
  Transmission Date: 20210419
  Serious: No
  Sender: FDA-Public Use
  Company Number: US-SA-2021SA002640

PATIENT

DRUGS (1)
  1. KEVZARA [Suspect]
     Active Substance: SARILUMAB
     Dosage: 200 MG (DOSE: 200MG/1.14 ML; FREQUENXY: OTHER)
     Route: 058
     Dates: start: 201912

REACTIONS (1)
  - Product dose omission in error [Unknown]
